FAERS Safety Report 9230845 (Version 2)
Quarter: 2013Q2

REPORT INFORMATION
  Report Type: Spontaneous
  Country: GB (occurrence: None)
  Receive Date: 20130411
  Receipt Date: 20130417
  Transmission Date: 20140414
  Serious: Yes (Other)
  Sender: FDA-Public Use
  Company Number: AUR-APL-2013-02980

PATIENT
  Age: 47 Year
  Sex: Male
  Weight: 85 kg

DRUGS (3)
  1. RAMIPRIL (RAMIPRIL) [Suspect]
     Indication: PRODUCT USED FOR UNKNOWN INDICATION
     Dates: start: 20121205
  2. ATORVASTATIN (ATORVASTATIN) [Concomitant]
  3. BISOPROLOL (BISOPROLOL) [Concomitant]

REACTIONS (3)
  - Raynaud^s phenomenon [None]
  - Pre-existing disease [None]
  - Disease progression [None]
